FAERS Safety Report 25384047 (Version 1)
Quarter: 2025Q2

REPORT INFORMATION
  Report Type: Other
  Country: HU (occurrence: HU)
  Receive Date: 20250602
  Receipt Date: 20250602
  Transmission Date: 20250717
  Serious: Yes (Death, Life-Threatening, Hospitalization, Other)
  Sender: STRIDES
  Company Number: HU-STRIDES ARCOLAB LIMITED-2025SP006594

PATIENT
  Age: 78 Year
  Sex: Male

DRUGS (27)
  1. VANCOMYCIN [Suspect]
     Active Substance: VANCOMYCIN
     Indication: Clostridium difficile infection
     Route: 048
  2. MEROPENEM [Suspect]
     Active Substance: MEROPENEM
     Indication: Pneumonia klebsiella
     Route: 042
  3. AVIBACTAM SODIUM\CEFTAZIDIME [Suspect]
     Active Substance: AVIBACTAM SODIUM\CEFTAZIDIME
     Indication: Klebsiella infection
     Route: 042
     Dates: start: 20180707, end: 20180713
  4. AVIBACTAM SODIUM\CEFTAZIDIME [Suspect]
     Active Substance: AVIBACTAM SODIUM\CEFTAZIDIME
     Indication: Abdominal infection
  5. AVIBACTAM SODIUM\CEFTAZIDIME [Suspect]
     Active Substance: AVIBACTAM SODIUM\CEFTAZIDIME
     Indication: Sepsis
  6. AMOXICILLIN\CLAVULANIC ACID [Suspect]
     Active Substance: AMOXICILLIN\CLAVULANIC ACID
     Indication: Inflammation
     Route: 042
  7. AMOXICILLIN\CLAVULANIC ACID [Suspect]
     Active Substance: AMOXICILLIN\CLAVULANIC ACID
     Indication: Prophylaxis
  8. CEFTAZIDIME [Suspect]
     Active Substance: CEFTAZIDIME
     Indication: Pseudomonas infection
     Route: 042
  9. CEFTAZIDIME [Suspect]
     Active Substance: CEFTAZIDIME
     Indication: Enterobacter infection
  10. CEFTAZIDIME [Suspect]
     Active Substance: CEFTAZIDIME
     Indication: Enterobacter infection
  11. CEFUROXIME [Suspect]
     Active Substance: CEFUROXIME
     Indication: Inflammation
     Route: 042
  12. CEFUROXIME [Suspect]
     Active Substance: CEFUROXIME
     Indication: Escherichia infection
  13. CILASTATIN SODIUM\IMIPENEM [Suspect]
     Active Substance: CILASTATIN SODIUM\IMIPENEM
     Indication: Enterococcal infection
     Route: 042
  14. CILASTATIN SODIUM\IMIPENEM [Suspect]
     Active Substance: CILASTATIN SODIUM\IMIPENEM
     Indication: Renal impairment
     Route: 042
  15. FIDAXOMICIN [Suspect]
     Active Substance: FIDAXOMICIN
     Indication: Clostridium difficile infection
     Route: 065
  16. FOSFOMYCIN [Suspect]
     Active Substance: FOSFOMYCIN
     Indication: Pneumonia klebsiella
     Route: 048
  17. GENTAMICIN [Suspect]
     Active Substance: GENTAMICIN
     Indication: Enterobacter infection
     Route: 042
  18. GENTAMICIN [Suspect]
     Active Substance: GENTAMICIN
     Indication: Pseudomonas infection
  19. GENTAMICIN [Suspect]
     Active Substance: GENTAMICIN
     Indication: Enterobacter infection
  20. PIPERACILLIN AND TAZOBACTAM [Suspect]
     Active Substance: PIPERACILLIN SODIUM\TAZOBACTAM SODIUM
     Indication: Antibiotic therapy
     Route: 042
  21. METRONIDAZOLE [Suspect]
     Active Substance: METRONIDAZOLE
     Indication: Prophylaxis
     Route: 042
  22. METRONIDAZOLE [Suspect]
     Active Substance: METRONIDAZOLE
     Indication: Inflammation
  23. METRONIDAZOLE [Suspect]
     Active Substance: METRONIDAZOLE
     Indication: Clostridium difficile infection
  24. SULFAMETHOXAZOLE AND TRIMETHOPRIM [Suspect]
     Active Substance: SULFAMETHOXAZOLE\TRIMETHOPRIM
     Indication: Citrobacter infection
     Route: 048
  25. METHENAMINE [Concomitant]
     Active Substance: METHENAMINE
     Indication: Product used for unknown indication
     Route: 065
  26. POVIDONE-IODINE [Concomitant]
     Active Substance: POVIDONE-IODINE
     Indication: Product used for unknown indication
     Route: 065
  27. ASCORBIC ACID [Concomitant]
     Active Substance: ASCORBIC ACID
     Indication: Product used for unknown indication
     Route: 065

REACTIONS (16)
  - Sepsis [Fatal]
  - Pathogen resistance [Fatal]
  - Septic shock [Fatal]
  - Hypoxia [Unknown]
  - Anaemia [Unknown]
  - Melaena [Unknown]
  - Malaise [Unknown]
  - Pyrexia [Unknown]
  - Clostridium difficile infection [Not Recovered/Not Resolved]
  - Respiratory failure [Unknown]
  - Gastroenteritis [Unknown]
  - Chills [Unknown]
  - Chest pain [Unknown]
  - Product use in unapproved indication [Unknown]
  - Diarrhoea [Unknown]
  - Dyspnoea [Unknown]

NARRATIVE: CASE EVENT DATE: 20180718
